FAERS Safety Report 5016118-9 (Version None)
Quarter: 2006Q2

REPORT INFORMATION
  Report Type: 
  Country: None (occurrence: None)
  Receive Date: 20060601
  Receipt Date: 20060522
  Transmission Date: 20061013
  Serious: Yes (Hospitalization)
  Sender: FDA-Public Use
  Company Number: FR-ABBOTT-06P-056-0333808-00

PATIENT
  Age: 60 Year
  Sex: Female

DRUGS (2)
  1. SECALIP [Suspect]
     Indication: HYPERCHOLESTEROLAEMIA
     Route: 048
     Dates: end: 20060313
  2. FLAVOXATE HCL [Concomitant]
     Indication: DRUG USE FOR UNKNOWN INDICATION
     Dates: start: 20060127, end: 20060130

REACTIONS (7)
  - ANOREXIA [None]
  - CHROMATURIA [None]
  - FAECES DISCOLOURED [None]
  - HEPATITIS CHOLESTATIC [None]
  - INFLUENZA LIKE ILLNESS [None]
  - JAUNDICE [None]
  - PAIN [None]
